FAERS Safety Report 7269258-8 (Version None)
Quarter: 2011Q1

REPORT INFORMATION
  Report Type: 
  Country: None (occurrence: None)
  Receive Date: 20110202
  Receipt Date: 20110124
  Transmission Date: 20110831
  Serious: Yes (Death, Hospitalization)
  Sender: FDA-Public Use
  Company Number: DE-JNJFOC-20100306222

PATIENT
  Sex: Female

DRUGS (3)
  1. CONTRAST MEDIA [Concomitant]
     Indication: CATHETERISATION CARDIAC
  2. REOPRO [Suspect]
     Indication: ACUTE MYOCARDIAL INFARCTION
     Route: 022
  3. REOPRO [Suspect]
     Dosage: PERFUSION FOR 12 HOURS AND 35 MINUTES
     Route: 041

REACTIONS (2)
  - INCORRECT ROUTE OF DRUG ADMINISTRATION [None]
  - RENAL FAILURE ACUTE [None]
